FAERS Safety Report 8053230-4 (Version None)
Quarter: 2012Q1

REPORT INFORMATION
  Report Type: 
  Country: None (occurrence: None)
  Receive Date: 20120118
  Receipt Date: 20120117
  Transmission Date: 20120608
  Serious: Yes (Hospitalization)
  Sender: FDA-Public Use
  Company Number: CN-ROCHE-1030704

PATIENT
  Sex: Female
  Weight: 67.5 kg

DRUGS (2)
  1. VITAMIN B6 [Concomitant]
     Indication: PROPHYLAXIS
     Route: 048
     Dates: start: 20090101
  2. XELODA [Suspect]
     Indication: COLON CANCER
     Route: 048
     Dates: start: 20091101

REACTIONS (5)
  - SKIN EXFOLIATION [None]
  - PHARYNGITIS [None]
  - METASTASES TO SPLEEN [None]
  - METASTASES TO OVARY [None]
  - METASTASES TO UTERUS [None]
